FAERS Safety Report 18809083 (Version 1)
Quarter: 2021Q1

REPORT INFORMATION
  Report Type: Spontaneous
  Country: MY (occurrence: MY)
  Receive Date: 20210129
  Receipt Date: 20210129
  Transmission Date: 20210419
  Serious: Yes (Life-Threatening, Hospitalization, Other)
  Sender: FDA-Public Use
  Company Number: MY-B.I. PHARMACEUTICALS,INC./RIDGEFIELD-2021-BI-079047

PATIENT
  Age: 40 Year
  Sex: Female

DRUGS (4)
  1. LOW MOLECULAR WEIGHT HEPARIN [Suspect]
     Active Substance: UNSPECIFIED INGREDIENT
     Indication: CEREBRAL VENOUS SINUS THROMBOSIS
  2. CARBIMAZOLE [Suspect]
     Active Substance: CARBIMAZOLE
     Indication: CEREBRAL VENOUS SINUS THROMBOSIS
  3. PROPRANOLOL [Suspect]
     Active Substance: PROPRANOLOL HYDROCHLORIDE
     Indication: CEREBRAL VENOUS SINUS THROMBOSIS
  4. PRADAXA [Suspect]
     Active Substance: DABIGATRAN ETEXILATE MESYLATE
     Indication: ANTICOAGULANT THERAPY

REACTIONS (3)
  - Menorrhagia [Unknown]
  - Cervix carcinoma stage IV [Unknown]
  - Anaemia [Unknown]
